FAERS Safety Report 5762119-2 (Version None)
Quarter: 2008Q2

REPORT INFORMATION
  Report Type: 
  Country: None (occurrence: None)
  Receive Date: 20080604
  Receipt Date: 20080522
  Transmission Date: 20081010
  Serious: Yes (Death, Life-Threatening, Hospitalization)
  Sender: FDA-Public Use
  Company Number: DSA_31140_2008

PATIENT
  Age: 41 Year
  Sex: Female

DRUGS (1)
  1. DILTIAZEM [Suspect]
     Indication: HYPERTENSION
     Dosage: 33600 MG 1X NOT THE PRESCRIBED AMOUNT, ORAL 300 MG,QD; ORAL
     Route: 048

REACTIONS (6)
  - CARDIAC ARREST [None]
  - CARDIOGENIC SHOCK [None]
  - HYPOKALAEMIA [None]
  - INTENTIONAL OVERDOSE [None]
  - METABOLIC ACIDOSIS [None]
  - SUICIDE ATTEMPT [None]
